FAERS Safety Report 5141133-4 (Version None)
Quarter: 2006Q4

REPORT INFORMATION
  Report Type: 
  Country: None (occurrence: None)
  Receive Date: 20061026
  Receipt Date: 20061019
  Transmission Date: 20070319
  Serious: Yes (Life-Threatening)
  Sender: FDA-Public Use
  Company Number: 2006-05469

PATIENT
  Age: 59 Year
  Sex: Male

DRUGS (3)
  1. METOPROLOL (WATSON LABORATORIES)(METOPROLOL TARTRATE) INJECTION, 1MG/M [Suspect]
     Indication: ATRIAL FIBRILLATION
     Dosage: 100 MG, INTRAVENOUS
     Route: 042
     Dates: start: 20060401, end: 20060401
  2. DIGITOXIN TAB [Suspect]
     Indication: ATRIAL FIBRILLATION
     Dosage: 0.4 MG, INTRAVENOUS
     Route: 042
     Dates: start: 20060401
  3. AMIODARONE HCL [Suspect]
     Indication: ATRIAL FIBRILLATION
     Dosage: 2 ML, Q1H X 24HRS (1050MG/50ML), INTRAVENOUS
     Route: 042
     Dates: start: 20060401

REACTIONS (2)
  - DRUG INTERACTION POTENTIATION [None]
  - TORSADE DE POINTES [None]
